FAERS Safety Report 7867866-4 (Version None)
Quarter: 2011Q4

REPORT INFORMATION
  Report Type: 
  Country: None (occurrence: None)
  Receive Date: 20111028
  Receipt Date: 20111019
  Transmission Date: 20120403
  Serious: Yes (Hospitalization, Disabling, Other)
  Sender: FDA-Public Use
  Company Number: FR-ASTRAZENECA-2011SE59207

PATIENT
  Age: 25414 Day
  Sex: Male
  Weight: 97 kg

DRUGS (5)
  1. ACETAMINOPHEN [Concomitant]
     Indication: PAIN
     Dates: start: 20080101
  2. ALLOPURINOL [Suspect]
     Indication: HYPERURICAEMIA
     Dates: start: 20030101, end: 20110620
  3. LERCANIDIPINE [Concomitant]
     Indication: ANGINA PECTORIS
     Dates: start: 20080101
  4. CRESTOR [Suspect]
     Indication: HYPERCHOLESTEROLAEMIA
     Route: 048
     Dates: start: 20081110, end: 20110907
  5. CIALIS [Concomitant]
     Indication: ERECTILE DYSFUNCTION

REACTIONS (2)
  - INTERSTITIAL LUNG DISEASE [None]
  - GYNAECOMASTIA [None]
